FAERS Safety Report 6833602-3 (Version None)
Quarter: 2010Q3

REPORT INFORMATION
  Report Type: 
  Country: None (occurrence: None)
  Receive Date: 20100712
  Receipt Date: 20070329
  Transmission Date: 20110219
  Serious: No
  Sender: FDA-Public Use
  Company Number: US-PFIZER INC-2007027041

PATIENT
  Sex: Female
  Weight: 64.41 kg

DRUGS (6)
  1. CHANTIX [Suspect]
     Indication: SMOKING CESSATION THERAPY
     Dates: start: 20070222
  2. NEXIUM [Concomitant]
     Indication: GASTROOESOPHAGEAL REFLUX DISEASE
  3. CLARINEX [Concomitant]
     Indication: HYPERSENSITIVITY
  4. MONTELUKAST SODIUM [Concomitant]
     Indication: HYPERSENSITIVITY
  5. DIAMOX SRC [Concomitant]
     Indication: BRAIN OPERATION
  6. ZYBAN [Concomitant]

REACTIONS (4)
  - ABNORMAL DREAMS [None]
  - NAUSEA [None]
  - SLEEP DISORDER [None]
  - WEIGHT INCREASED [None]
